FAERS Safety Report 4811591-0 (Version None)
Quarter: 2005Q4

REPORT INFORMATION
  Report Type: 
  Country: None (occurrence: None)
  Receive Date: 20051027
  Receipt Date: 20051019
  Transmission Date: 20060501
  Serious: Yes (Death)
  Sender: FDA-Public Use
  Company Number: CA-MERCK-0510CAN00194

PATIENT
  Sex: Female

DRUGS (3)
  1. VIOXX [Suspect]
     Route: 048
  2. CELECOXIB [Suspect]
     Route: 065
  3. VALDECOXIB [Suspect]
     Route: 065

REACTIONS (1)
  - DEATH [None]
